FAERS Safety Report 20966541 (Version 2)
Quarter: 2022Q4

REPORT INFORMATION
  Report Type: Report from Study
  Country: IT (occurrence: IT)
  Receive Date: 20220616
  Receipt Date: 20221109
  Transmission Date: 20230113
  Serious: Yes (Death, Other)
  Sender: FDA-Public Use
  Company Number: IT-BRISTOL-MYERS SQUIBB COMPANY-2022-046348

PATIENT
  Age: 80 Year
  Sex: Male
  Weight: 85 kg

DRUGS (4)
  1. NIVOLUMAB [Suspect]
     Active Substance: NIVOLUMAB
     Indication: Mesothelioma
     Dosage: EVERY 2 WEEKS
     Route: 042
     Dates: start: 20211028, end: 20220527
  2. IPILIMUMAB [Suspect]
     Active Substance: IPILIMUMAB
     Indication: Mesothelioma
     Dosage: EVERY 6 WEEKS
     Route: 042
     Dates: start: 20211028, end: 20220527
  3. SIMVASTATIN [Concomitant]
     Active Substance: SIMVASTATIN
     Indication: Hypercholesterolaemia
     Dosage: 1 DOSE UNIT CP, FREQUENCY DAILY
     Route: 048
  4. COVID-19 VACCINE [Concomitant]
     Indication: Product used for unknown indication
     Dosage: BOOSTER DOSE
     Route: 065
     Dates: start: 20220530

REACTIONS (2)
  - Pneumonia [Recovered/Resolved]
  - Death [Fatal]

NARRATIVE: CASE EVENT DATE: 20220228
